FAERS Safety Report 4994383-1 (Version None)
Quarter: 2006Q2

REPORT INFORMATION
  Report Type: 
  Country: None (occurrence: None)
  Receive Date: 20060503
  Receipt Date: 20060424
  Transmission Date: 20061013
  Serious: Yes (Other)
  Sender: FDA-Public Use
  Company Number: DE200604002067

PATIENT
  Sex: Female

DRUGS (1)
  1. ZYPREXA [Suspect]
     Indication: SCHIZOTYPAL PERSONALITY DISORDER
     Dosage: 5 MG, DAILY (1/D),
     Dates: start: 20050101, end: 20060101

REACTIONS (6)
  - ANGIOPATHY [None]
  - COLLAGEN DISORDER [None]
  - FEAR [None]
  - OPEN WOUND [None]
  - RAYNAUD'S PHENOMENON [None]
  - VASCULITIS [None]
